FAERS Safety Report 17069848 (Version 1)
Quarter: 2019Q4

REPORT INFORMATION
  Report Type: Report from Study
  Country: IT (occurrence: IT)
  Receive Date: 20191125
  Receipt Date: 20191125
  Transmission Date: 20200122
  Serious: Yes (Life-Threatening)
  Sender: FDA-Public Use
  Company Number: IT-TEVA-2019-IT-1140661

PATIENT
  Age: 86 Year
  Sex: Female
  Weight: 158 kg

DRUGS (11)
  1. MONOCINQUE [Concomitant]
     Active Substance: ISOSORBIDE MONONITRATE
     Dosage: 20 MG
     Route: 048
     Dates: start: 20180228
  2. BISOPROLOL FUMARATE. [Suspect]
     Active Substance: BISOPROLOL FUMARATE
     Indication: HYPERTENSION
     Dosage: 2.5 MG
     Route: 048
     Dates: start: 20180228, end: 20191028
  3. ATORVASTATIN [Suspect]
     Active Substance: ATORVASTATIN
     Indication: PERIPHERAL ARTERIAL OCCLUSIVE DISEASE
     Dosage: 20 MG
     Route: 048
     Dates: start: 20180228, end: 20191028
  4. PANTOPRAZOLE [Concomitant]
     Active Substance: PANTOPRAZOLE
     Dosage: 40 MG
     Route: 048
     Dates: start: 20180228
  5. QUETIAPINE. [Concomitant]
     Active Substance: QUETIAPINE
     Dosage: 25 MG
     Route: 048
     Dates: start: 20180228
  6. ENOXAPARIN SODIUM. [Concomitant]
     Active Substance: ENOXAPARIN SODIUM
     Dosage: 4000 IU
     Route: 058
     Dates: start: 20180228
  7. TRAZODONE HYDROCHLORIDE. [Concomitant]
     Active Substance: TRAZODONE HYDROCHLORIDE
     Dosage: 25 MG
     Route: 048
     Dates: start: 20180313
  8. FUROSEMIDE. [Suspect]
     Active Substance: FUROSEMIDE
     Indication: HYPERTENSION
     Dosage: 75 MG
     Route: 048
     Dates: start: 20180228, end: 20191028
  9. CARDIOASPIRIN [Suspect]
     Active Substance: ASPIRIN
     Indication: THROMBOSIS PROPHYLAXIS
     Dosage: 100 MG
     Route: 048
     Dates: start: 20180228, end: 20191028
  10. LANTUS [Concomitant]
     Active Substance: INSULIN GLARGINE
     Dosage: 16 IU
     Route: 058
     Dates: start: 20180228
  11. APIDRA [Concomitant]
     Active Substance: INSULIN GLULISINE
     Dosage: 50 IU
     Route: 058
     Dates: start: 20180228

REACTIONS (5)
  - Cerebrovascular accident [Recovered/Resolved]
  - Drug ineffective [Recovered/Resolved]
  - Loss of consciousness [Recovered/Resolved]
  - Vomiting [Recovered/Resolved]
  - Blood pressure systolic increased [Recovered/Resolved]

NARRATIVE: CASE EVENT DATE: 20180626
